FAERS Safety Report 15500683 (Version 1)
Quarter: 2018Q4

REPORT INFORMATION
  Report Type: Spontaneous
  Country: US (occurrence: US)
  Receive Date: 20181015
  Receipt Date: 20181015
  Transmission Date: 20190205
  Serious: Yes (Hospitalization, Other)
  Sender: FDA-Public Use
  Company Number: US-IMPAX LABORATORIES, INC-2018-IPXL-03383

PATIENT
  Age: 5 Day
  Sex: Female

DRUGS (2)
  1. METHIMAZOLE. [Suspect]
     Active Substance: METHIMAZOLE
     Indication: BASEDOW^S DISEASE
     Dosage: 1 MG/KG/DAY
     Route: 065
  2. PROPRANOLOL HYDROCHLORIDE IR [Suspect]
     Active Substance: PROPRANOLOL HYDROCHLORIDE
     Indication: BASEDOW^S DISEASE
     Dosage: 1 MG, THREE TIMES DAILY
     Route: 048

REACTIONS (5)
  - Neonatal cardiac failure [Recovered/Resolved]
  - Product use issue [Unknown]
  - Persistent foetal circulation [Recovered/Resolved]
  - Product use in unapproved indication [Unknown]
  - Product administered to patient of inappropriate age [Unknown]
